FAERS Safety Report 8839244 (Version 1)
Quarter: 2012Q4

REPORT INFORMATION
  Report Type: 
  Country: NL (occurrence: NL)
  Receive Date: 20121015
  Receipt Date: 20121015
  Transmission Date: 20130627
  Serious: Yes (Hospitalization)
  Sender: FDA-Public Use
  Company Number: NL-JNJFOC-20121003395

PATIENT
  Sex: Male

DRUGS (5)
  1. REMICADE [Suspect]
     Indication: CROHN^S DISEASE
     Route: 042
     Dates: start: 20010625, end: 20010625
  2. PREDNISONUM [Concomitant]
     Route: 065
     Dates: start: 20010401
  3. SALOFALK [Concomitant]
     Route: 065
     Dates: start: 20010401
  4. IMURAN [Concomitant]
     Route: 065
     Dates: start: 20010401
  5. BETNESOL [Concomitant]
     Route: 065

REACTIONS (2)
  - Lung abscess [Recovered/Resolved]
  - Nocardiosis [Recovered/Resolved]
